FAERS Safety Report 21476648 (Version 1)
Quarter: 2022Q4

REPORT INFORMATION
  Report Type: Spontaneous
  Country: US (occurrence: US)
  Receive Date: 20221019
  Receipt Date: 20221019
  Transmission Date: 20230113
  Serious: No
  Sender: FDA-Public Use
  Company Number: US-ADAMAS Pharma-ADM202204-000730

PATIENT
  Age: 72 Year
  Sex: Male

DRUGS (2)
  1. GOCOVRI [Suspect]
     Active Substance: AMANTADINE
     Indication: Parkinson^s disease
     Route: 048
     Dates: start: 20220602
  2. GOCOVRI [Suspect]
     Active Substance: AMANTADINE
     Indication: Dyskinesia

REACTIONS (5)
  - Gastric disorder [Unknown]
  - Asthenia [Unknown]
  - Dizziness [Unknown]
  - Constipation [Unknown]
  - Peripheral swelling [Unknown]
